FAERS Safety Report 23536625 (Version 1)
Quarter: 2024Q1

REPORT INFORMATION
  Report Type: Spontaneous
  Country: GB (occurrence: GB)
  Receive Date: 20240219
  Receipt Date: 20240219
  Transmission Date: 20240409
  Serious: Yes (Disabling)
  Sender: FDA-Public Use
  Company Number: None

PATIENT
  Age: 76 Year
  Sex: Female
  Weight: 49 kg

DRUGS (29)
  1. PREGABALIN [Suspect]
     Active Substance: PREGABALIN
     Dosage: TAKE ONE  A DAY FOR 1 WEEK, THAN BD
     Route: 065
     Dates: start: 20240207
  2. CHOLECALCIFEROL [Concomitant]
     Active Substance: CHOLECALCIFEROL
     Dates: start: 20231107
  3. EZETIMIBE [Concomitant]
     Active Substance: EZETIMIBE
     Dates: start: 20231128
  4. ALENDRONIC ACID [Concomitant]
     Active Substance: ALENDRONIC ACID
     Dates: start: 20231107
  5. UNSPECIFIED INGREDIENT [Concomitant]
     Active Substance: UNSPECIFIED INGREDIENT
     Dosage: USE AS DIRECTED
     Dates: start: 20231107
  6. BETAMETHASONE SODIUM PHOSPHATE [Concomitant]
     Active Substance: BETAMETHASONE SODIUM PHOSPHATE
     Dosage: DISSOLVE IN 10MLS OF WATER 4 TIMES DAY
     Dates: start: 20231107
  7. CYANOCOBALAMIN [Concomitant]
     Active Substance: CYANOCOBALAMIN
     Dates: start: 20231107
  8. FLUTICASONE PROPIONATE [Concomitant]
     Active Substance: FLUTICASONE PROPIONATE
     Dates: start: 20231107
  9. PREDNISOLONE [Concomitant]
     Active Substance: PREDNISOLONE
     Dosage: DURATION: 5 DAYS
     Dates: start: 20240124, end: 20240129
  10. DAPAGLIFLOZIN [Concomitant]
     Active Substance: DAPAGLIFLOZIN
     Dates: start: 20231107
  11. CARBAMAZEPINE [Concomitant]
     Active Substance: CARBAMAZEPINE
     Dosage: ONE A DAY FOR 3/7, THAN INCREASE TO 2 TABL OD, DURATION: 63 DAYS
     Dates: start: 20231122, end: 20240124
  12. CETRABEN [Concomitant]
     Dosage: USE AS DIRECTED, EMOLLIENT CREAM, DURATION: 10 DAYS
     Dates: start: 20240124, end: 20240203
  13. HYALURONATE SODIUM [Concomitant]
     Active Substance: HYALURONATE SODIUM
     Dates: start: 20231107
  14. METRONIDAZOLE [Concomitant]
     Active Substance: METRONIDAZOLE
     Dosage: TIME INTERVAL: 0.33333333 DAYS: DURATION: 7 DAYS
     Dates: start: 20231222, end: 20231229
  15. COCODAMOL [Concomitant]
     Active Substance: ACETAMINOPHEN\CODEINE PHOSPHATE
     Dosage: TAKE 1 OR 2, 3 TIMES/DAY
     Dates: start: 20240129
  16. BENZYDAMINE HYDROCHLORIDE [Concomitant]
     Active Substance: BENZYDAMINE HYDROCHLORIDE
     Dosage: FOR THREE MONTHS THEN REVIEW
     Dates: start: 20231107
  17. CODEINE PHOSPHATE [Concomitant]
     Active Substance: CODEINE PHOSPHATE
     Dosage: TAKE ONE 4 TIMES/DAY WHEN REQUIRED, DURATION: 7 DAYS
     Dates: start: 20231110, end: 20231117
  18. FEXOFENADINE [Concomitant]
     Active Substance: FEXOFENADINE HYDROCHLORIDE
     Dates: start: 20240124
  19. FLUCLOXACILLIN [Concomitant]
     Active Substance: FLUCLOXACILLIN
     Dosage: DURATION: 5 DAYS
     Dates: start: 20231222, end: 20231227
  20. BETAMETHASONE VALERATE\FUSIDIC ACID [Concomitant]
     Active Substance: BETAMETHASONE VALERATE\FUSIDIC ACID
     Dosage: DURATION: 7 DAYS
     Dates: start: 20240124, end: 20240131
  21. AMLODIPINE [Concomitant]
     Active Substance: AMLODIPINE BESYLATE
     Dosage: ONE TO BE TAKEN TWICE DAILY
     Dates: start: 20231107
  22. TRESIBA [Concomitant]
     Active Substance: INSULIN DEGLUDEC
     Dates: start: 20231107
  23. AVEENO [Concomitant]
     Active Substance: DIMETHICONE\HOMOSALATE\OCTINOXATE\OCTISALATE\TITANIUM DIOXIDE
     Dosage: USE AS DIRECTED FOR WASH
     Dates: start: 20231107
  24. LOSARTAN [Concomitant]
     Active Substance: LOSARTAN
     Dates: start: 20231107
  25. ATORVASTATIN [Concomitant]
     Active Substance: ATORVASTATIN
     Dosage: AT NIGHT
     Dates: start: 20231107
  26. HYDROCORTISONE [Concomitant]
     Active Substance: HYDROCORTISONE
     Dosage: AS DIRECTED
     Dates: start: 20231107
  27. METFORMIN [Concomitant]
     Active Substance: METFORMIN HYDROCHLORIDE
     Dosage: WITH EVENING  MEAL
     Dates: start: 20231107
  28. CHLORTHALIDONE [Concomitant]
     Active Substance: CHLORTHALIDONE
     Dates: start: 20231107
  29. ACETAMINOPHEN [Concomitant]
     Active Substance: ACETAMINOPHEN
     Dosage: TAKE 2 TABLETS 4-6 HRLY WHEN REQUIRED MAX 8/DAY, DURATION: 28 DAYS
     Dates: start: 20231110, end: 20231208

REACTIONS (1)
  - Dermatitis exfoliative generalised [Not Recovered/Not Resolved]

NARRATIVE: CASE EVENT DATE: 20240207
